FAERS Safety Report 9979806 (Version 1)
Quarter: 2014Q1

REPORT INFORMATION
  Report Type: Report from Study
  Country: US (occurrence: US)
  Receive Date: 20140307
  Receipt Date: 20140307
  Transmission Date: 20141002
  Serious: No
  Sender: FDA-Public Use
  Company Number: US-ABBVIE-13P-163-1172714-00

PATIENT
  Sex: Female

DRUGS (2)
  1. HUMIRA [Suspect]
     Indication: CROHN^S DISEASE
     Dates: start: 20131005
  2. METRONIDAZOLE [Concomitant]
     Indication: SKIN LESION

REACTIONS (2)
  - Ear swelling [Not Recovered/Not Resolved]
  - Otorrhoea [Not Recovered/Not Resolved]
